FAERS Safety Report 9592407 (Version 1)
Quarter: 2013Q3

REPORT INFORMATION
  Report Type: Spontaneous
  Country: US (occurrence: None)
  Receive Date: 20130909
  Receipt Date: 20130909
  Transmission Date: 20140515
  Serious: Yes (Other)
  Sender: FDA-Public Use
  Company Number: 1633151

PATIENT
  Age: 63 Year
  Sex: Male

DRUGS (1)
  1. HEPARIN SODIUM [Suspect]
     Indication: STENT MALFUNCTION
     Dates: start: 20130307

REACTIONS (3)
  - Bleeding time prolonged [None]
  - Drug effect delayed [None]
  - Drug effect increased [None]
